FAERS Safety Report 8593610 (Version 2)
Quarter: 2014Q1

REPORT INFORMATION
  Report Type: Spontaneous
  Country: US (occurrence: None)
  Receive Date: 20120323
  Receipt Date: 20140306
  Transmission Date: 20141002
  Serious: Yes (Other)
  Sender: FDA-Public Use
  Company Number: 163-21880-11030417

PATIENT
  Age: 58 Year
  Sex: Female
  Weight: 103.87 kg

DRUGS (13)
  1. REVLIMID [Suspect]
     Indication: PLASMA CELL MYELOMA
     Dosage: 25 MG, FOR 14 DAYS, PO
     Route: 048
     Dates: start: 201012
  2. ACYCLOVIR [Concomitant]
  3. ALLOPURINOL(ALLOPURINOL)(UKNOWN) [Concomitant]
  4. ASPIRIN (ACETYLSALICYLIC ACID) [Concomitant]
  5. CALCIUM [Concomitant]
  6. DECADRON [Concomitant]
  7. ESTRADIOL [Concomitant]
  8. OXYCODONE HYDROCHLORIDE [Concomitant]
  9. SYNTHROID [Concomitant]
  10. TRIMETHOPRIM [Concomitant]
  11. VELCADE [Concomitant]
  12. VITAMIN D (ERGOCALCIFEROL) [Concomitant]
  13. ZOFRAN [Concomitant]

REACTIONS (3)
  - Pulmonary embolism [None]
  - Deep vein thrombosis [None]
  - Rash [None]
